FAERS Safety Report 8426667 (Version 2)
Quarter: 2012Q4

REPORT INFORMATION
  Report Type: 
  Country: BR (occurrence: BR)
  Receive Date: 20120227
  Receipt Date: 20121220
  Transmission Date: 20130627
  Serious: Yes (Other)
  Sender: FDA-Public Use
  Company Number: BR-AMGEN-BRASP2012008023

PATIENT
  Age: 38 Year
  Sex: Female
  Weight: 76 kg

DRUGS (5)
  1. ENBREL [Suspect]
     Indication: PSORIASIS
     Dosage: 50 mg, once weekly
     Route: 058
     Dates: start: 201110, end: 201201
  2. ENBREL [Suspect]
     Indication: PSORIATIC ARTHROPATHY
     Dosage: 50 mg, once weekly
     Route: 058
  3. ENBREL [Suspect]
     Dosage: UNK
  4. BUSCOPAN [Concomitant]
     Dosage: UNK
  5. DICLIN [Concomitant]
     Indication: CONTRACEPTION
     Dosage: UNK

REACTIONS (11)
  - Tooth fracture [Unknown]
  - Cholelithiasis [Unknown]
  - Viral infection [Unknown]
  - Cough [Unknown]
  - Nausea [Unknown]
  - Vomiting [Unknown]
  - Injection site pain [Unknown]
  - Injection site erythema [Unknown]
  - Injection site pruritus [Unknown]
  - Rhinitis [Unknown]
  - Injection site pain [Unknown]
